FAERS Safety Report 24162850 (Version 1)
Quarter: 2024Q3

REPORT INFORMATION
  Report Type: Spontaneous
  Country: US (occurrence: None)
  Receive Date: 20240801
  Receipt Date: 20240801
  Transmission Date: 20241017
  Serious: Yes (Other)
  Sender: Public
  Company Number: None

PATIENT
  Age: 25 Year
  Weight: 64.35 kg

DRUGS (6)
  1. MONISTAT 3 [Suspect]
     Active Substance: MICONAZOLE NITRATE
     Indication: Fungal infection
     Dosage: 3 SUPPOSITORIES AT BEDTIME VAGINAL ?
     Route: 067
     Dates: start: 20240730, end: 20240731
  2. setraline [Concomitant]
  3. WELLBUTRIN [Concomitant]
  4. claritin [Concomitant]
  5. birth control [Concomitant]
  6. PROBIOTICS NOS [Concomitant]
     Active Substance: PROBIOTICS NOS

REACTIONS (1)
  - Injection site pruritus [None]

NARRATIVE: CASE EVENT DATE: 20240731
